FAERS Safety Report 9201297 (Version 1)
Quarter: 2013Q1

REPORT INFORMATION
  Report Type: Spontaneous
  Country: US (occurrence: None)
  Receive Date: 20130325
  Receipt Date: 20130325
  Transmission Date: 20140127
  Serious: Yes (Other)
  Sender: FDA-Public Use
  Company Number: 2013034744

PATIENT
  Sex: Female
  Weight: 90.72 kg

DRUGS (7)
  1. BERINERT P [Suspect]
     Indication: HEREDITARY ANGIOEDEMA
     Dosage: (1000 IU PRN, 20 ML; 4 ML/MINUTE INTRAVENOUS (NOT OTHERWISE SPECIFIED))
     Route: 042
     Dates: start: 20130206, end: 20130206
  2. SINGULAIR [Concomitant]
  3. ZANTAC (RANITIDINE HYDROCHLORIDE) [Concomitant]
  4. ZYRTEC (CETIRIZINE HYDROCHLORIDE) [Concomitant]
  5. ABILIFY (ARIPIPRAZOLE) [Concomitant]
  6. SEASONIQUE (EUGYNON / /) [Concomitant]
  7. LUVOX (FLUVOXAMINE MALEATE) [Concomitant]

REACTIONS (4)
  - Headache [None]
  - Vision blurred [None]
  - Metamorphopsia [None]
  - Eye pain [None]
